FAERS Safety Report 19516668 (Version 6)
Quarter: 2024Q3

REPORT INFORMATION
  Report Type: Report from Study
  Country: JP (occurrence: JP)
  Receive Date: 20210709
  Receipt Date: 20240815
  Transmission Date: 20241017
  Serious: Yes (Other)
  Sender: ABBVIE
  Company Number: JP-TAKEDA-2020TJP010179

PATIENT
  Age: 56 Year
  Sex: Male
  Weight: 59 kg

DRUGS (4)
  1. LEUPROLIDE ACETATE [Suspect]
     Active Substance: ISOPROPYL ALCOHOL\LEUPROLIDE ACETATE
     Indication: Bulbospinal muscular atrophy congenital
     Dosage: 11.25 MILLIGRAM, Q3MONTHS
     Route: 058
     Dates: start: 20200221, end: 20200221
  2. ZOLPIDEM TARTRATE [Concomitant]
     Active Substance: ZOLPIDEM TARTRATE
     Indication: Insomnia
     Dosage: 10 MILLIGRAM
     Route: 048
     Dates: start: 20150427
  3. TOCOPHERYL NICOTINATE [Concomitant]
     Active Substance: TOCOPHERYL NICOTINATE, D-.ALPHA.
     Indication: Product used for unknown indication
     Dosage: 200 MILLIGRAM
     Route: 065
  4. METHYLCOBALAMIN [Concomitant]
     Active Substance: METHYLCOBALAMIN
     Indication: Product used for unknown indication
     Dosage: 1500 MICROGRAM
     Route: 065

REACTIONS (8)
  - Blood creatine phosphokinase increased [Recovered/Resolved]
  - Blood creatine phosphokinase increased [Recovered/Resolved]
  - Muscular weakness [Recovered/Resolved]
  - Gait disturbance [Recovered/Resolved]
  - Pain in extremity [Recovered/Resolved]
  - Decreased activity [Unknown]
  - Hypogonadism [Recovered/Resolved]
  - Muscular weakness [Recovered/Resolved]

NARRATIVE: CASE EVENT DATE: 20200323
